FAERS Safety Report 12298290 (Version 3)
Quarter: 2016Q3

REPORT INFORMATION
  Report Type: Spontaneous
  Country: US (occurrence: US)
  Receive Date: 20160423
  Receipt Date: 20160727
  Transmission Date: 20161109
  Serious: No
  Sender: FDA-Public Use
  Company Number: US-BRISTOL-MYERS SQUIBB COMPANY-BMS-2016-029915

PATIENT
  Age: 57 Year
  Sex: Female

DRUGS (4)
  1. SOFOSBUVIR [Suspect]
     Active Substance: SOFOSBUVIR
     Indication: CHRONIC HEPATITIS C
     Dosage: UNK
     Route: 048
     Dates: start: 20160204, end: 20160722
  2. ATIVAN [Concomitant]
     Active Substance: LORAZEPAM
     Indication: PRODUCT USED FOR UNKNOWN INDICATION
     Dosage: UNK, PRN
     Route: 065
  3. RIBAVIRIN. [Suspect]
     Active Substance: RIBAVIRIN
     Indication: CHRONIC HEPATITIS C
     Dosage: 1 DF, BID
     Route: 048
     Dates: start: 20160204, end: 20160722
  4. DAKLINZA [Suspect]
     Active Substance: DACLATASVIR
     Indication: CHRONIC HEPATITIS C
     Dosage: 1 TAB, QD
     Route: 048
     Dates: start: 20160204, end: 20160722

REACTIONS (2)
  - Irritability [Unknown]
  - Dissociative identity disorder [Unknown]

NARRATIVE: CASE EVENT DATE: 20160613
